FAERS Safety Report 7377987-0 (Version None)
Quarter: 2011Q1

REPORT INFORMATION
  Report Type: 
  Country: None (occurrence: None)
  Receive Date: 20110328
  Receipt Date: 20110314
  Transmission Date: 20110831
  Serious: Yes (Other)
  Sender: FDA-Public Use
  Company Number: FR-JNJFOC-20110206412

PATIENT
  Age: 50 Year
  Sex: Female
  Weight: 90 kg

DRUGS (10)
  1. LYRICA [Concomitant]
     Indication: NEURALGIA
  2. NEXIUM [Concomitant]
     Indication: GASTRITIS
  3. REMICADE [Suspect]
     Indication: PSORIASIS
     Dosage: 5TH INFUSION
     Route: 042
  4. LEXOMIL [Concomitant]
     Indication: SLEEP DISORDER THERAPY
     Dosage: DOSE REPORTED 1/4 DF IN EVENING
  5. PRIMPERAN TAB [Concomitant]
     Indication: NAUSEA
  6. REMICADE [Suspect]
     Dosage: FOUR INFUSIONS ON UNSPECIFIED DATES
     Route: 042
  7. REMICADE [Suspect]
     Dosage: FOUR INFUSIONS ON UNSPECIFIED DATES
     Route: 042
  8. REMICADE [Suspect]
     Indication: PSORIATIC ARTHROPATHY
     Dosage: 5TH INFUSION
     Route: 042
  9. BI-PROFENID [Concomitant]
     Indication: FIBROMYALGIA
  10. BI-PROFENID [Concomitant]
     Indication: ARTHRALGIA

REACTIONS (5)
  - URTICARIA [None]
  - INFUSION RELATED REACTION [None]
  - RASH [None]
  - FACE OEDEMA [None]
  - PALPITATIONS [None]
